FAERS Safety Report 4521141-4 (Version None)
Quarter: 2004Q4

REPORT INFORMATION
  Report Type: 
  Country: None (occurrence: None)
  Receive Date: 20041203
  Receipt Date: 20041124
  Transmission Date: 20050328
  Serious: Yes (Other)
  Sender: FDA-Public Use
  Company Number: K200401817

PATIENT
  Age: 42 Year
  Sex: Male

DRUGS (5)
  1. SEPTRA [Suspect]
     Dosage: 3 TIMES/WEEK, UNK
  2. METHADONE (METHADONE)90 MG [Suspect]
     Dosage: 90 MG, QD; ORAL
     Route: 048
  3. INDINAVIR (INDINAVIR) 600 [Suspect]
     Dosage: 600 UNK, UNK, UNK
  4. LAMIVUDINE [Concomitant]
  5. ZIDOVUDINE [Concomitant]

REACTIONS (5)
  - DRUG INTERACTION [None]
  - ELECTROCARDIOGRAM QT PROLONGED [None]
  - HYPOMAGNESAEMIA [None]
  - TORSADE DE POINTES [None]
  - VENTRICULAR TACHYCARDIA [None]
